FAERS Safety Report 16322050 (Version 1)
Quarter: 2019Q2

REPORT INFORMATION
  Report Type: Spontaneous
  Country: US (occurrence: US)
  Receive Date: 20190516
  Receipt Date: 20190516
  Transmission Date: 20190711
  Serious: Yes (Death, Hospitalization)
  Sender: FDA-Public Use
  Company Number: US-TEVA-2019-US-1049661

PATIENT
  Age: 82 Year
  Sex: Male

DRUGS (8)
  1. PEMBROLIZUMAB. [Concomitant]
     Active Substance: PEMBROLIZUMAB
     Indication: METASTATIC MALIGNANT MELANOMA
     Dosage: 9.5238 MILLIGRAM DAILY;
     Route: 050
     Dates: start: 201709, end: 201805
  2. IBRUTINIB [Concomitant]
     Active Substance: IBRUTINIB
     Indication: METASTATIC MALIGNANT MELANOMA
     Dosage: 280 MILLIGRAM DAILY;
     Route: 048
     Dates: start: 2018
  3. ACYCLOVIR. [Concomitant]
     Active Substance: ACYCLOVIR
     Indication: PEMPHIGOID
     Route: 042
  4. PEMBROLIZUMAB. [Concomitant]
     Active Substance: PEMBROLIZUMAB
     Route: 050
     Dates: start: 201806
  5. METHYLPREDNISOLONE. [Suspect]
     Active Substance: METHYLPREDNISOLONE
     Indication: PEMPHIGOID
     Dosage: 1 MG/KG DAILY;
     Route: 042
  6. PREDNISONE. [Suspect]
     Active Substance: PREDNISONE
     Indication: PEMPHIGOID
     Dosage: THEREAFTER TAPERED
     Route: 065
  7. PREDNISONE. [Suspect]
     Active Substance: PREDNISONE
     Dosage: 40 MILLIGRAM DAILY;
     Route: 065
  8. PREDNISONE. [Suspect]
     Active Substance: PREDNISONE
     Dosage: HIGH-DOSE PREDNISONE FOR 8 DAYS
     Route: 048

REACTIONS (1)
  - Diabetes mellitus [Unknown]
